FAERS Safety Report 5320720-4 (Version None)
Quarter: 2007Q2

REPORT INFORMATION
  Report Type: 
  Country: None (occurrence: None)
  Receive Date: 20070509
  Receipt Date: 20070503
  Transmission Date: 20071010
  Serious: Yes (Other)
  Sender: FDA-Public Use
  Company Number: AT-PFIZER INC-2007035687

PATIENT
  Age: 10 Year
  Sex: Male

DRUGS (1)
  1. TRESLEEN [Suspect]

REACTIONS (1)
  - BLOOD IMMUNOGLOBULIN E INCREASED [None]
